FAERS Safety Report 10335971 (Version 2)
Quarter: 2014Q3

REPORT INFORMATION
  Report Type: Spontaneous
  Country: US (occurrence: US)
  Receive Date: 20140723
  Receipt Date: 20140723
  Transmission Date: 20150326
  Serious: No
  Sender: FDA-Public Use
  Company Number: US-BRISTOL-MYERS SQUIBB COMPANY-19396480

PATIENT
  Age: 80 Year

DRUGS (7)
  1. SUTENT [Suspect]
     Active Substance: SUNITINIB MALATE
     Indication: RENAL CELL CARCINOMA
     Dosage: 1.5 PER ORAL DAILY:CAPS?37.5 MG DAILY, 4 WEEKS ON AND 2 WEEKS OFF
     Route: 048
  2. DIGOXIN. [Concomitant]
     Active Substance: DIGOXIN
     Dosage: TAB
     Route: 048
  3. ATENOLOL. [Concomitant]
     Active Substance: ATENOLOL
  4. PLAVIX [Suspect]
     Active Substance: CLOPIDOGREL BISULFATE
     Dosage: TAB
     Route: 048
  5. COUMADINE [Suspect]
     Active Substance: WARFARIN SODIUM
  6. BABY ASPIRIN [Concomitant]
     Active Substance: ASPIRIN
     Dosage: TAB, ENTERIC CODED
     Route: 048
  7. ZETIA [Concomitant]
     Active Substance: EZETIMIBE
     Dosage: TAB
     Route: 048

REACTIONS (10)
  - Dehydration [Unknown]
  - Dyspnoea [Unknown]
  - Cystitis [Unknown]
  - Abdominal pain upper [Unknown]
  - International normalised ratio fluctuation [Unknown]
  - Alopecia [Unknown]
  - Decreased appetite [Unknown]
  - Epistaxis [Unknown]
  - Oesophageal pain [Unknown]
  - Stress [Unknown]
